FAERS Safety Report 8571581 (Version 3)
Quarter: 2014Q2

REPORT INFORMATION
  Report Type: Spontaneous
  Country: US (occurrence: US)
  Receive Date: 20120521
  Receipt Date: 20140429
  Transmission Date: 20141212
  Serious: Yes (Death, Hospitalization)
  Sender: FDA-Public Use
  Company Number: US-GLAXOSMITHKLINE-A0933119A

PATIENT
  Age: 55 Year
  Sex: Male

DRUGS (1)
  1. AVANDIA [Suspect]
     Indication: DIABETES MELLITUS
     Dosage: 4MG TWICE PER DAY
     Route: 065
     Dates: start: 200111, end: 200608

REACTIONS (11)
  - Death [Fatal]
  - Myocardial infarction [Unknown]
  - Ventricular fibrillation [Unknown]
  - Cardiac failure congestive [Unknown]
  - Cardiogenic shock [Unknown]
  - Respiratory failure [Unknown]
  - Torsade de pointes [Unknown]
  - Coronary artery bypass [Unknown]
  - Implantable defibrillator insertion [Unknown]
  - Stent placement [Unknown]
  - Coronary artery disease [Unknown]
